FAERS Safety Report 9148579 (Version 2)
Quarter: 2013Q1

REPORT INFORMATION
  Report Type: Spontaneous
  Country: ES (occurrence: ES)
  Receive Date: 20130308
  Receipt Date: 20130315
  Transmission Date: 20140127
  Serious: Yes (Hospitalization)
  Sender: FDA-Public Use
  Company Number: ES-JNJFOC-20130214305

PATIENT
  Age: 61 Year
  Sex: Male

DRUGS (9)
  1. RISPERDAL [Suspect]
     Indication: PRODUCT USED FOR UNKNOWN INDICATION
     Route: 048
     Dates: start: 20120109, end: 20120215
  2. BIPERIDEN [Suspect]
     Indication: PRODUCT USED FOR UNKNOWN INDICATION
     Route: 065
     Dates: start: 20120115, end: 20120215
  3. HYDROXYZINE HYDROCHLORIDE [Suspect]
     Indication: PRODUCT USED FOR UNKNOWN INDICATION
     Route: 065
     Dates: start: 20120115, end: 20120215
  4. CLOZAPINE [Suspect]
     Indication: PRODUCT USED FOR UNKNOWN INDICATION
     Route: 065
     Dates: start: 20120115, end: 20120215
  5. ENALAPRIL [Concomitant]
     Route: 065
     Dates: start: 2007
  6. OMEPRAZOLE [Concomitant]
     Route: 065
     Dates: start: 2010
  7. SIMVASTATIN [Concomitant]
     Route: 065
  8. ACETYLSALICYLIC ACID [Concomitant]
     Route: 065
     Dates: start: 2010
  9. INSULIN [Concomitant]
     Route: 058
     Dates: start: 2007

REACTIONS (1)
  - Metabolic encephalopathy [Recovered/Resolved]
